FAERS Safety Report 5367965-5 (Version None)
Quarter: 2007Q2

REPORT INFORMATION
  Report Type: 
  Country: None (occurrence: None)
  Receive Date: 20070622
  Receipt Date: 20070612
  Transmission Date: 20071010
  Serious: Yes (Hospitalization)
  Sender: FDA-Public Use
  Company Number: IT-PFIZER INC-2007041348

PATIENT
  Sex: Female

DRUGS (10)
  1. MEDROL [Suspect]
     Indication: RHEUMATOID ARTHRITIS
     Route: 048
     Dates: start: 20070426, end: 20070515
  2. HUMIRA [Suspect]
     Indication: RHEUMATOID ARTHRITIS
     Route: 058
  3. ARAVA [Suspect]
     Indication: RHEUMATOID ARTHRITIS
     Route: 048
  4. LANSOPRAZOLE [Concomitant]
  5. GABAPENTIN [Concomitant]
  6. METACEN 50 [Concomitant]
  7. DIAMICRON [Concomitant]
  8. CARDURA [Concomitant]
  9. NORVASC [Concomitant]
  10. COTAREG [Concomitant]

REACTIONS (4)
  - ABSCESS [None]
  - HYPOKINESIA [None]
  - PAIN [None]
  - SWELLING [None]
